FAERS Safety Report 13299868 (Version 1)
Quarter: 2017Q1

REPORT INFORMATION
  Report Type: Report from Study
  Country: US (occurrence: US)
  Receive Date: 20170306
  Receipt Date: 20170306
  Transmission Date: 20170428
  Serious: Yes (Hospitalization)
  Sender: FDA-Public Use
  Company Number: US-ROCHE-1897288

PATIENT
  Age: 25 Year
  Sex: Female
  Weight: 64.8 kg

DRUGS (23)
  1. VENETOCLAX [Suspect]
     Active Substance: VENETOCLAX
     Route: 048
     Dates: start: 20170120, end: 20170120
  2. TYROSINE [Suspect]
     Active Substance: TYROSINE
     Indication: NUTRITIONAL SUPPLEMENTATION
     Route: 065
  3. ALLOPURINOL. [Concomitant]
     Active Substance: ALLOPURINOL
     Route: 065
  4. OXYGEN. [Concomitant]
     Active Substance: OXYGEN
     Indication: PNEUMONIA
     Dosage: 1/4 LITRE PER NASAL CANNULA
     Route: 065
  5. MAGNESIUM OXIDE. [Concomitant]
     Active Substance: MAGNESIUM OXIDE
  6. VANCOMYCIN [Concomitant]
     Active Substance: VANCOMYCIN
  7. VENETOCLAX [Suspect]
     Active Substance: VENETOCLAX
     Route: 048
     Dates: start: 20170121, end: 20170121
  8. SYNTHROID [Concomitant]
     Active Substance: LEVOTHYROXINE SODIUM
  9. CARVEDILOL. [Concomitant]
     Active Substance: CARVEDILOL
     Indication: ARRHYTHMIA
     Route: 065
  10. MORPHINE [Concomitant]
     Active Substance: MORPHINE
  11. PREDNISONE. [Concomitant]
     Active Substance: PREDNISONE
     Indication: PNEUMONIA
     Dosage: TAPER DOSE
     Route: 065
  12. VENETOCLAX [Suspect]
     Active Substance: VENETOCLAX
     Route: 048
     Dates: start: 20170126, end: 20170126
  13. BACTRIM [Concomitant]
     Active Substance: SULFAMETHOXAZOLE\TRIMETHOPRIM
     Indication: PNEUMONIA
  14. VENETOCLAX [Suspect]
     Active Substance: VENETOCLAX
     Indication: ACUTE MYELOID LEUKAEMIA RECURRENT
     Route: 048
     Dates: start: 20170119, end: 20170119
  15. VENETOCLAX [Suspect]
     Active Substance: VENETOCLAX
     Route: 048
     Dates: start: 20170125, end: 20170125
  16. PYRIDOXINE HYDROCHLORIDE. [Suspect]
     Active Substance: PYRIDOXINE HYDROCHLORIDE
     Indication: NUTRITIONAL SUPPLEMENTATION
     Route: 065
  17. NICOTINAMIDE [Suspect]
     Active Substance: NIACINAMIDE
     Indication: NUTRITIONAL SUPPLEMENTATION
     Route: 065
  18. MEROPENEM. [Concomitant]
     Active Substance: MEROPENEM
     Route: 042
  19. VENETOCLAX [Suspect]
     Active Substance: VENETOCLAX
     Route: 048
     Dates: start: 20170122, end: 20170124
  20. AMPHOTERICIN B. [Concomitant]
     Active Substance: AMPHOTERICIN B
     Indication: PYREXIA
  21. MICAFUNGIN [Concomitant]
     Active Substance: MICAFUNGIN
     Indication: PYREXIA
  22. CARVEDILOL. [Concomitant]
     Active Substance: CARVEDILOL
     Indication: TORSADE DE POINTES
  23. NEXIUM [Concomitant]
     Active Substance: ESOMEPRAZOLE MAGNESIUM

REACTIONS (11)
  - Nausea [Recovered/Resolved]
  - White blood cell count decreased [Not Recovered/Not Resolved]
  - Blood phosphorus increased [Unknown]
  - Platelet count decreased [Not Recovered/Not Resolved]
  - Vomiting [Recovered/Resolved]
  - Blood calcium increased [Recovered/Resolved]
  - Blood potassium increased [Recovered/Resolved]
  - Pyrexia [Recovered/Resolved]
  - Blood urea nitrogen/creatinine ratio increased [Unknown]
  - Tumour lysis syndrome [Not Recovered/Not Resolved]
  - Anaemia [Recovered/Resolved]

NARRATIVE: CASE EVENT DATE: 20170119
